FAERS Safety Report 10366229 (Version 1)
Quarter: 2014Q3

REPORT INFORMATION
  Report Type: Spontaneous
  Country: US (occurrence: US)
  Receive Date: 20140806
  Receipt Date: 20140806
  Transmission Date: 20150326
  Serious: No
  Sender: FDA-Public Use
  Company Number: US-BAYER-2014-105231

PATIENT
  Age: 53 Year

DRUGS (1)
  1. FINACEA [Suspect]
     Active Substance: AZELAIC ACID
     Indication: ROSACEA
     Dosage: UNK
     Dates: start: 20140625, end: 20140625

REACTIONS (3)
  - Erythema [None]
  - Burning sensation [None]
  - Urticaria [None]

NARRATIVE: CASE EVENT DATE: 20140625
